FAERS Safety Report 14821083 (Version 1)
Quarter: 2018Q2

REPORT INFORMATION
  Report Type: Spontaneous
  Country: FR (occurrence: FR)
  Receive Date: 20180427
  Receipt Date: 20180427
  Transmission Date: 20180711
  Serious: Yes (Other)
  Sender: FDA-Public Use
  Company Number: FR-VERTEX PHARMACEUTICALS-2017-003405

PATIENT
  Age: 20 Year
  Sex: Male
  Weight: 60 kg

DRUGS (18)
  1. TOCO [Concomitant]
     Active Substance: UNSPECIFIED INGREDIENT
     Dosage: 1 DF, QD
  2. LANTUS [Concomitant]
     Active Substance: INSULIN GLARGINE
     Dosage: IN THE EVENING
  3. UVEDOSE [Concomitant]
     Active Substance: CHOLECALCIFEROL
     Dosage: 1 AMPULE PER MONTH
  4. INNOVAIR [Concomitant]
     Active Substance: BECLOMETHASONE DIPROPIONATE\FORMOTEROL
     Dosage: 2 DF, MORNING AND EVENING
     Route: 055
  5. URSOLVAN [Concomitant]
     Active Substance: URSODIOL
     Dosage: 1 DF, MORNING AND EVENING
  6. OMEPRAZOLE. [Concomitant]
     Active Substance: OMEPRAZOLE
     Dosage: 1 DF, QD
  7. APIDRA [Concomitant]
     Active Substance: INSULIN GLULISINE
     Dosage: 4 DF IN MORING, 3 AT LUNCHTIME NAD 3 IN THE EVENING
  8. ORKAMBI [Suspect]
     Active Substance: IVACAFTOR\LUMACAFTOR
     Dosage: HALF DOSE
     Route: 048
  9. NASONEX [Concomitant]
     Active Substance: MOMETASONE FUROATE
     Dosage: 1 PULVERISATION, QD
  10. KESTINLYO [Concomitant]
     Active Substance: EBASTINE
     Dosage: 2 DF, MORNING
  11. XOLAIR [Concomitant]
     Active Substance: OMALIZUMAB
     Dosage: 150 MG, UNK
  12. EUROBIOL [Concomitant]
     Dosage: 12 DF, QD
  13. PULMOZYME [Concomitant]
     Active Substance: DORNASE ALFA
     Dosage: 1 DF, QD
  14. VENTOLINE [Concomitant]
     Active Substance: ALBUTEROL
     Dosage: 1-2 PUFFS, PRN
     Route: 055
  15. PULMICORT TURBUHALER [Concomitant]
     Active Substance: BUDESONIDE
  16. ZITHROMAX [Concomitant]
     Active Substance: AZITHROMYCIN DIHYDRATE
     Dosage: 1 DF, QD
  17. VITAMIN A [Concomitant]
     Active Substance: VITAMIN A
     Dosage: 1 DF, QW
  18. ORKAMBI [Suspect]
     Active Substance: IVACAFTOR\LUMACAFTOR
     Indication: CYSTIC FIBROSIS
     Dosage: 2 DF, BID
     Route: 048
     Dates: start: 201605

REACTIONS (1)
  - Cataract [Not Recovered/Not Resolved]

NARRATIVE: CASE EVENT DATE: 20170621
